FAERS Safety Report 10381788 (Version 1)
Quarter: 2014Q3

REPORT INFORMATION
  Report Type: Spontaneous
  Country: FR (occurrence: None)
  Receive Date: 20140811
  Receipt Date: 20140811
  Transmission Date: 20150326
  Serious: Yes (Hospitalization)
  Sender: FDA-Public Use
  Company Number: 2014FR0330

PATIENT
  Age: 14 Year
  Sex: Female

DRUGS (2)
  1. CORTICOSTEROID [Concomitant]
     Active Substance: CORTICOSTEROID NOS
  2. KINERET [Suspect]
     Active Substance: ANAKINRA
     Indication: JUVENILE IDIOPATHIC ARTHRITIS

REACTIONS (6)
  - Drug eruption [None]
  - Injection site rash [None]
  - Eosinophil count increased [None]
  - Palmar-plantar erythrodysaesthesia syndrome [None]
  - Rash maculo-papular [None]
  - Hepatic enzyme increased [None]
